FAERS Safety Report 10064315 (Version 3)
Quarter: 2014Q2

REPORT INFORMATION
  Report Type: Spontaneous
  Country: DE (occurrence: None)
  Receive Date: 20140404
  Receipt Date: 20140516
  Transmission Date: 20141212
  Serious: Yes (Hospitalization, Other)
  Sender: FDA-Public Use
  Company Number: 2014-19279

PATIENT
  Age: 75 Year
  Sex: Male
  Weight: 82 kg

DRUGS (11)
  1. EYLEA [Suspect]
     Indication: AGE-RELATED MACULAR DEGENERATION
  2. ADALAT CRONO [Concomitant]
  3. CANDESARTAN [Concomitant]
  4. DAFALGAN [Concomitant]
  5. BRUFEN [Concomitant]
  6. SOMNIUM [Concomitant]
  7. DIPHENHYDRAMINE AND LORAZEPAM [Concomitant]
  8. ATENOLOL [Concomitant]
  9. ATENOLOL AND CHLORTALIDONE [Concomitant]
  10. STERCULIA [Concomitant]
  11. ZOLPIDEM TARTRATE [Concomitant]

REACTIONS (8)
  - Coronary artery disease [None]
  - Arteriosclerosis coronary artery [None]
  - Acute myocardial infarction [None]
  - Heart rate decreased [None]
  - Rhythm idioventricular [None]
  - Atrial fibrillation [None]
  - Tachycardia [None]
  - Self-medication [None]
